FAERS Safety Report 24091622 (Version 1)
Quarter: 2024Q3

REPORT INFORMATION
  Report Type: Spontaneous
  Country: US (occurrence: None)
  Receive Date: 20240714
  Receipt Date: 20240714
  Transmission Date: 20241017
  Serious: Yes (unspecified)
  Sender: Public
  Company Number: None

PATIENT
  Age: 56 Year
  Sex: Female

DRUGS (2)
  1. METHIMAZOLE [Suspect]
     Active Substance: METHIMAZOLE
     Indication: Graves^ disease
     Dosage: 30 TABLETS TWICE A DAY ORAL?
     Route: 048
     Dates: start: 20100101
  2. ATENENOL WATER PILL [Concomitant]

REACTIONS (2)
  - Tooth discolouration [None]
  - Alopecia [None]

NARRATIVE: CASE EVENT DATE: 20130101
